FAERS Safety Report 4371158-8 (Version None)
Quarter: 2004Q2

REPORT INFORMATION
  Report Type: 
  Country: None (occurrence: None)
  Receive Date: 20040601
  Receipt Date: 20040520
  Transmission Date: 20050107
  Serious: Yes (Other)
  Sender: FDA-Public Use
  Company Number: US-JNJFOC-20040206219

PATIENT
  Age: 60 Year
  Sex: Female

DRUGS (14)
  1. INFLIXIMAB (INFLIXIMAB, RECOMBINANT) LYOPHILIZED POWDER [Suspect]
     Indication: RHEUMATOID ARTHRITIS
     Dosage: INTRAVENOUS
     Route: 042
     Dates: start: 20020116, end: 20030616
  2. METHOTREXATE [Concomitant]
  3. PREDNISONE TAB [Concomitant]
  4. TOPAMAX [Concomitant]
  5. SALSALATE (SALSALATE) [Concomitant]
  6. FLEXERIL [Concomitant]
  7. SYNTHROID (LEVOTHYROXIME SODIUM [Concomitant]
  8. FOLIC ACID [Concomitant]
  9. IMITREX [Concomitant]
  10. AMBIEN [Concomitant]
  11. CALCIUM (CALCIUIM) [Concomitant]
  12. FLORICET (FLUDROCORTISONE ACETATE) [Concomitant]
  13. FOSAMAX [Concomitant]
  14. ULTRACET (HYDROTALCITE) [Concomitant]

REACTIONS (2)
  - CHEST PAIN [None]
  - SYSTEMIC LUPUS ERYTHEMATOSUS [None]
